FAERS Safety Report 8916911 (Version 1)
Quarter: 2012Q4

REPORT INFORMATION
  Report Type: 
  Country: US (occurrence: US)
  Receive Date: 20121120
  Receipt Date: 20121120
  Transmission Date: 20130627
  Serious: Yes (Hospitalization, Other)
  Sender: FDA-Public Use
  Company Number: US-009507513-1205USA05471

PATIENT
  Age: 76 Year
  Sex: Male
  Weight: 82.55 kg

DRUGS (6)
  1. DECADRON TABLETS [Suspect]
     Indication: LYMPHADENOPATHY
     Dosage: 10 mg, qd
     Dates: start: 20110915, end: 20110915
  2. DECADRON TABLETS [Suspect]
     Indication: CHRONIC LYMPHOCYTIC LEUKAEMIA
     Dosage: 40 mg, qd
     Route: 048
     Dates: start: 20120330, end: 20120402
  3. COREG [Concomitant]
     Indication: HYPERTENSION
     Dosage: 25 mg, UNK
     Route: 048
  4. VALTREX [Concomitant]
     Indication: ANTIVIRAL TREATMENT
     Dosage: 500 mg, UNK
     Route: 048
     Dates: start: 20120315
  5. BACTRIM [Concomitant]
     Indication: ANTIBIOTIC LEVEL
     Dosage: 400 mg, UNK
     Route: 048
     Dates: start: 20120329, end: 20120430
  6. NORVASC [Concomitant]

REACTIONS (5)
  - Urate nephropathy [Recovered/Resolved]
  - Renal failure acute [Recovered/Resolved]
  - Febrile neutropenia [Recovered/Resolved]
  - Tumour lysis syndrome [Recovered/Resolved]
  - Nephrolithiasis [Recovered/Resolved]
